FAERS Safety Report 21227901 (Version 1)
Quarter: 2022Q3

REPORT INFORMATION
  Report Type: Spontaneous
  Country: US (occurrence: None)
  Receive Date: 20220817
  Receipt Date: 20220817
  Transmission Date: 20221026
  Serious: No
  Sender: FDA-Public Use
  Company Number: None

PATIENT
  Age: 73 Year
  Sex: Female

DRUGS (1)
  1. ENBREL [Suspect]
     Active Substance: ETANERCEPT
     Route: 058

REACTIONS (4)
  - Chronic obstructive pulmonary disease [None]
  - Pulmonary thrombosis [None]
  - Erythema [None]
  - Thrombosis [None]

NARRATIVE: CASE EVENT DATE: 20220817
